FAERS Safety Report 22147828 (Version 1)
Quarter: 2023Q1

REPORT INFORMATION
  Report Type: Spontaneous
  Country: PT (occurrence: PT)
  Receive Date: 20230328
  Receipt Date: 20230328
  Transmission Date: 20230418
  Serious: Yes (Hospitalization, Other)
  Sender: FDA-Public Use
  Company Number: PT-MYLANLABS-2022M1119007

PATIENT
  Age: 63 Year
  Sex: Female

DRUGS (1)
  1. GEMCITABINE [Suspect]
     Active Substance: GEMCITABINE
     Indication: Ovarian cancer metastatic
     Dosage: UNK
     Route: 065

REACTIONS (5)
  - Gait disturbance [Recovered/Resolved]
  - Pain in extremity [Recovered/Resolved]
  - Renal impairment [Unknown]
  - Oedema peripheral [Unknown]
  - Thrombotic microangiopathy [Recovered/Resolved with Sequelae]
